FAERS Safety Report 23842506 (Version 1)
Quarter: 2024Q2

REPORT INFORMATION
  Report Type: Spontaneous
  Country: AU (occurrence: AU)
  Receive Date: 20240510
  Receipt Date: 20240510
  Transmission Date: 20240716
  Serious: Yes (Hospitalization)
  Sender: FDA-Public Use
  Company Number: AU-PFIZER INC-PV202400047610

PATIENT
  Age: 71 Year
  Sex: Male
  Weight: 64 kg

DRUGS (3)
  1. XALKORI [Suspect]
     Active Substance: CRIZOTINIB
     Indication: Metastatic ocular melanoma
     Dosage: 200 MG, 2X/DAY
     Route: 048
     Dates: start: 20231102, end: 20240416
  2. DAROVASERTIB [Suspect]
     Active Substance: DAROVASERTIB
     Indication: Metastatic ocular melanoma
     Dosage: 300 MG, 1X/DAY
     Dates: start: 20231026
  3. DAROVASERTIB [Suspect]
     Active Substance: DAROVASERTIB
     Indication: Uveal melanoma

REACTIONS (4)
  - Gastrointestinal toxicity [Recovered/Resolved]
  - Oedema [Recovered/Resolved]
  - Drug effective for unapproved indication [Unknown]
  - Off label use [Unknown]

NARRATIVE: CASE EVENT DATE: 20231102
